FAERS Safety Report 9575281 (Version 1)
Quarter: 2013Q4

REPORT INFORMATION
  Report Type: Spontaneous
  Country: US (occurrence: US)
  Receive Date: 20131001
  Receipt Date: 20131001
  Transmission Date: 20140711
  Serious: No
  Sender: FDA-Public Use
  Company Number: US-009507513-1309USA010359

PATIENT
  Age: 44 Year
  Sex: Female
  Weight: 92.2 kg

DRUGS (3)
  1. NEXPLANON [Suspect]
     Indication: CONTRACEPTION
     Dosage: 1 ROD/THREE YEARS
     Route: 059
     Dates: start: 20130903, end: 20130903
  2. NEXPLANON [Suspect]
     Dosage: 1 ROD/ THREE YEARS
     Route: 059
     Dates: start: 20100729, end: 20130903
  3. NEXPLANON [Suspect]
     Dosage: 1 ROD/THREE YEARS
     Route: 059
     Dates: start: 20130903

REACTIONS (3)
  - Device difficult to use [Unknown]
  - Implant site bruising [Recovering/Resolving]
  - Incorrect drug administration duration [Unknown]
